FAERS Safety Report 16271843 (Version 1)
Quarter: 2019Q2

REPORT INFORMATION
  Report Type: Spontaneous
  Country: BR (occurrence: BR)
  Receive Date: 20190503
  Receipt Date: 20190503
  Transmission Date: 20190711
  Serious: Yes (Other)
  Sender: FDA-Public Use
  Company Number: BR-B.I. PHARMACEUTICALS,INC./RIDGEFIELD-2019-MI-000304

PATIENT
  Age: 44 Year
  Sex: Female
  Weight: 71 kg

DRUGS (6)
  1. BEROTEC [Suspect]
     Active Substance: FENOTEROL HYDROBROMIDE
     Indication: COUGH
     Dosage: 5 MG/20 ML DROPS (10 DROPS), INHALAT.LIQUID?DOSE (NO.)-10 DOSE-031
     Route: 055
     Dates: start: 20190424
  2. ATROVENT [Suspect]
     Active Substance: IPRATROPIUM BROMIDE
     Indication: COUGH
     Dosage: 0,25 MG/ML GOTAS, INHALAT.LIQUID?DOSE (NO.)-20 DOSE-031
     Route: 055
     Dates: start: 20190424
  3. ESALERG [Concomitant]
     Indication: PRODUCT USED FOR UNKNOWN INDICATION
     Route: 065
  4. ATROVENT [Suspect]
     Active Substance: IPRATROPIUM BROMIDE
     Indication: DYSPNOEA
  5. BEROTEC [Suspect]
     Active Substance: FENOTEROL HYDROBROMIDE
     Indication: DYSPNOEA
  6. ASTRO [Concomitant]
     Indication: PRODUCT USED FOR UNKNOWN INDICATION
     Route: 065

REACTIONS (6)
  - Chest pain [Not Recovered/Not Resolved]
  - Tremor [Not Recovered/Not Resolved]
  - Respiration abnormal [Not Recovered/Not Resolved]
  - Overdose [Unknown]
  - Product use in unapproved indication [Unknown]
  - Asthenia [Not Recovered/Not Resolved]

NARRATIVE: CASE EVENT DATE: 20190424
